FAERS Safety Report 5359996-6 (Version None)
Quarter: 2007Q2

REPORT INFORMATION
  Report Type: 
  Country: None (occurrence: None)
  Receive Date: 20070618
  Receipt Date: 20070606
  Transmission Date: 20071010
  Serious: Yes (Life-Threatening, Hospitalization, Other)
  Sender: FDA-Public Use
  Company Number: GB-JNJFOC-20070601584

PATIENT
  Age: 71 Year
  Sex: Female
  Weight: 96.6 kg

DRUGS (18)
  1. REMICADE [Suspect]
     Route: 042
  2. REMICADE [Suspect]
     Indication: RHEUMATOID ARTHRITIS
     Route: 042
  3. METHOTREXATE [Suspect]
     Indication: RHEUMATOID ARTHRITIS
     Route: 048
  4. ALENDRONIC ACID [Concomitant]
     Route: 048
  5. ATORVASTATIN CALCIUM [Concomitant]
     Route: 048
  6. DOCUSATE SODIUM [Concomitant]
     Route: 048
  7. FELODIPINE [Concomitant]
     Route: 048
  8. FOLIC ACID [Concomitant]
     Route: 048
  9. INDAPAMIDE [Concomitant]
     Route: 048
  10. LACRI-LUBE [Concomitant]
  11. LATANOPROST [Concomitant]
     Route: 047
  12. NABUMETONE [Concomitant]
     Indication: RHEUMATOID ARTHRITIS
     Route: 048
  13. PARACETAMOL [Concomitant]
     Route: 048
  14. PREDNISOLONE [Concomitant]
     Indication: RHEUMATOID ARTHRITIS
     Route: 048
  15. RAMIPRIL [Concomitant]
     Route: 048
  16. TOLTERODINE [Concomitant]
     Route: 048
  17. TRAMADOL HCL [Concomitant]
     Indication: RHEUMATOID ARTHRITIS
     Route: 048
  18. VISCOTEARS [Concomitant]
     Indication: RHEUMATOID ARTHRITIS
     Route: 047

REACTIONS (1)
  - RENAL CELL CARCINOMA STAGE UNSPECIFIED [None]
